FAERS Safety Report 11867954 (Version 1)
Quarter: 2015Q4

REPORT INFORMATION
  Report Type: Spontaneous
  Country: US (occurrence: US)
  Receive Date: 20151224
  Receipt Date: 20151224
  Transmission Date: 20160305
  Serious: No
  Sender: FDA-Public Use
  Company Number: US-009507513-1512USA007452

PATIENT
  Age: 33 Year
  Sex: Female

DRUGS (5)
  1. RALTEGRAVIR POTASSIUM [Suspect]
     Active Substance: RALTEGRAVIR POTASSIUM
     Dosage: DAILY DOSE 800 DF
     Route: 048
  2. ATAZANAVIR [Suspect]
     Active Substance: ATAZANAVIR
     Dosage: DAILY DOSE 400 DF
     Route: 048
  3. EMTRICITABINE (+) TENOFOVIR DISOPROXIL FUMARATE [Suspect]
     Active Substance: EMTRICITABINE\TENOFOVIR DISOPROXIL
     Dosage: DAILY DOSE 1 DF
     Route: 048
  4. RITONAVIR. [Suspect]
     Active Substance: RITONAVIR
     Dosage: DAILY DOSE 100 DF
  5. DARUNAVIR [Suspect]
     Active Substance: DARUNAVIR
     Dosage: DAILY DOSE 800 DF

REACTIONS (2)
  - No adverse event [Unknown]
  - Exposure during pregnancy [Recovered/Resolved]
